FAERS Safety Report 4504380-8 (Version None)
Quarter: 2004Q4

REPORT INFORMATION
  Report Type: 
  Country: None (occurrence: None)
  Receive Date: 20041115
  Receipt Date: 20041103
  Transmission Date: 20050328
  Serious: Yes (Other)
  Sender: FDA-Public Use
  Company Number: 2004087371

PATIENT
  Age: 82 Year
  Sex: Male
  Weight: 80.7403 kg

DRUGS (4)
  1. VIAGRA [Suspect]
     Indication: ERECTILE DYSFUNCTION
     Dosage: ORAL
     Route: 048
     Dates: start: 20040101, end: 20040101
  2. LISINOPRIL [Concomitant]
  3. ASPIRIN [Concomitant]
  4. TESTOSTERONE [Concomitant]

REACTIONS (1)
  - MACULAR DEGENERATION [None]
